FAERS Safety Report 12393545 (Version 1)
Quarter: 2016Q2

REPORT INFORMATION
  Report Type: Report from Study
  Country: JP (occurrence: JP)
  Receive Date: 20160523
  Receipt Date: 20160523
  Transmission Date: 20160815
  Serious: Yes (Hospitalization)
  Sender: FDA-Public Use
  Company Number: JP-TAIHO ONCOLOGY INC-JPTT160368

PATIENT
  Age: 62 Year
  Sex: Male
  Weight: 56 kg

DRUGS (13)
  1. LONSURF [Suspect]
     Active Substance: TIPIRACIL HYDROCHLORIDE\TRIFLURIDINE
     Indication: RECTAL CANCER
     Dosage: ON DAYS 1-5 AND 8-12 OF EACH 28-DAY CYCLE
     Route: 048
     Dates: start: 20160222, end: 20160429
  2. LOPERAMIDE HYDROCHLORIDE. [Concomitant]
     Active Substance: LOPERAMIDE HYDROCHLORIDE
     Indication: DIARRHOEA
     Route: 048
     Dates: start: 20131023
  3. ASPARA K [Concomitant]
     Active Substance: POTASSIUM ASPARTATE
     Indication: HYPOKALAEMIA
     Dosage: NUMBER OF DIVIDED DOSES NOT REPORTED
     Route: 048
     Dates: start: 20151217
  4. LONSURF [Suspect]
     Active Substance: TIPIRACIL HYDROCHLORIDE\TRIFLURIDINE
     Indication: RECTAL CANCER
     Dosage: ON DAYS 1-5 AND 8-12 OF EACH 28-DAY CYCLE
     Route: 048
     Dates: start: 20151127
  5. FLIVAS [Concomitant]
     Active Substance: NAFTOPIDIL
     Indication: BENIGN PROSTATIC HYPERPLASIA
     Dosage: NUMBER OF DIVIDED DOSES NOT REPORTED
     Route: 048
     Dates: start: 20160223
  6. NINTEDANIB [Suspect]
     Active Substance: NINTEDANIB
     Indication: RECTAL CANCER
     Route: 048
     Dates: start: 20151127, end: 20160505
  7. AMLODIPINE [Concomitant]
     Active Substance: AMLODIPINE BESYLATE
     Indication: HYPERTENSION
     Dosage: NUMBER OF DIVIDED DOSES NOT REPORTED
     Route: 048
     Dates: start: 20100723
  8. HIRUDOID [Concomitant]
     Active Substance: GLYCOSAMINOGLYCANS
     Indication: DERMATITIS ACNEIFORM
     Dosage: APPROPRIATE DOSE
     Route: 061
     Dates: start: 20140514
  9. URSODEOXYCHOLIC ACID [Concomitant]
     Active Substance: URSODIOL
     Indication: HEPATIC ENZYME INCREASED
     Dosage: NUMBER OF DIVIDED DOSES NOT REPORTED
     Route: 048
     Dates: start: 20110204
  10. LAC-B [Concomitant]
     Active Substance: BIFIDOBACTERIUM SPP.
     Indication: DIARRHOEA
     Dosage: NUMBER OF DIVIDED DOSES NOT REPORTED
     Route: 048
     Dates: start: 20151217
  11. DOGMATYL [Concomitant]
     Active Substance: SULPIRIDE
     Indication: DECREASED APPETITE
     Dosage: NUMBER OF DIVIDED DOSES NOT REPORTED
     Route: 048
     Dates: start: 20160104
  12. RABEPRAZOLE NA [Concomitant]
     Active Substance: RABEPRAZOLE SODIUM
     Indication: PROPHYLAXIS
     Dosage: NUMBER OF DIVIDED DOSES NOT REPORTED
     Route: 048
     Dates: start: 20140618
  13. BLOPRESS [Concomitant]
     Active Substance: CANDESARTAN CILEXETIL
     Indication: HYPERTENSION
     Dosage: NUMBER OF DIVIDED DOSES NOT REPORTED
     Route: 048
     Dates: start: 20100702

REACTIONS (1)
  - Small intestinal haemorrhage [Recovering/Resolving]

NARRATIVE: CASE EVENT DATE: 20160506
